FAERS Safety Report 6202412-2 (Version None)
Quarter: 2009Q2

REPORT INFORMATION
  Report Type: 
  Country: None (occurrence: None)
  Receive Date: 20090521
  Receipt Date: 20090521
  Transmission Date: 20091009
  Serious: No
  Sender: FDA-Public Use
  Company Number: None

PATIENT
  Sex: Female
  Weight: 57.1532 kg

DRUGS (2)
  1. LAMOTRIGINE [Suspect]
     Indication: CONVULSION
     Dosage: 150MG ONCE 1/2 BID PO
     Route: 048
     Dates: start: 20080901
  2. LAMOTRIGINE [Suspect]
     Indication: EPILEPSY
     Dosage: 150MG ONCE 1/2 BID PO
     Route: 048
     Dates: start: 20080901

REACTIONS (4)
  - CONFUSIONAL STATE [None]
  - GRAND MAL CONVULSION [None]
  - MEMORY IMPAIRMENT [None]
  - TREMOR [None]
